FAERS Safety Report 4390727-2 (Version None)
Quarter: 2004Q2

REPORT INFORMATION
  Report Type: 
  Country: None (occurrence: None)
  Receive Date: 20040629
  Receipt Date: 20040614
  Transmission Date: 20050107
  Serious: Yes (Death, Hospitalization)
  Sender: FDA-Public Use
  Company Number: MPS1-10216

PATIENT
  Age: 12 Month
  Sex: Male
  Weight: 8.1 kg

DRUGS (2)
  1. ALDURAZYME [Suspect]
     Indication: MUCOPOLYSACCHARIDOSIS I
     Dosage: 4.7 MG QWK IV
     Route: 042
     Dates: start: 20031201
  2. TACROLIMUS [Suspect]
     Indication: IMMUNOSUPPRESSION

REACTIONS (8)
  - FUNGAL INFECTION [None]
  - GRAFT VERSUS HOST DISEASE [None]
  - HAEMOLYTIC URAEMIC SYNDROME [None]
  - HEPATIC ADENOMA [None]
  - HYPERTENSION [None]
  - PNEUMOTHORAX [None]
  - POSTOPERATIVE STITCH SINUS [None]
  - RESPIRATORY FAILURE [None]
